FAERS Safety Report 16702162 (Version 1)
Quarter: 2019Q3

REPORT INFORMATION
  Report Type: Report from Study
  Country: JP (occurrence: JP)
  Receive Date: 20190814
  Receipt Date: 20190814
  Transmission Date: 20191004
  Serious: Yes (Other)
  Sender: FDA-Public Use
  Company Number: JP-AUROBINDO-AUR-APL-2019-053494

PATIENT

DRUGS (2)
  1. ZEVALIN [Suspect]
     Active Substance: IBRITUMOMAB TIUXETAN
     Indication: MANTLE CELL LYMPHOMA
     Dosage: UNK
     Route: 042
  2. ZEVALIN [Suspect]
     Active Substance: IBRITUMOMAB TIUXETAN
     Indication: MANTLE CELL LYMPHOMA
     Dosage: UNK
     Route: 042

REACTIONS (3)
  - Haematotoxicity [Unknown]
  - Acute myeloid leukaemia [Unknown]
  - Lung infection [Unknown]
